FAERS Safety Report 8981382 (Version 1)
Quarter: 2012Q4

REPORT INFORMATION
  Report Type: 
  Country: US (occurrence: US)
  Receive Date: 20121221
  Receipt Date: 20121221
  Transmission Date: 20130627
  Serious: No
  Sender: FDA-Public Use
  Company Number: US-PFIZER INC-2012320403

PATIENT
  Age: 73 Year
  Sex: Male
  Weight: 68.03 kg

DRUGS (2)
  1. NARDIL [Suspect]
     Indication: DEPRESSION
     Dosage: UNK, 2x/day
     Route: 048
     Dates: start: 1991
  2. VIAGRA [Suspect]
     Indication: ERECTILE DYSFUNCTION
     Dosage: UNK
     Dates: start: 2003

REACTIONS (1)
  - Hypertension [Not Recovered/Not Resolved]
